FAERS Safety Report 12633743 (Version 1)
Quarter: 2016Q3

REPORT INFORMATION
  Report Type: Spontaneous
  Country: EG (occurrence: EG)
  Receive Date: 20160809
  Receipt Date: 20160809
  Transmission Date: 20161109
  Serious: Yes (Life-Threatening, Other)
  Sender: FDA-Public Use
  Company Number: EG-BEH-2016061755

PATIENT
  Sex: Male
  Weight: 1.9 kg

DRUGS (10)
  1. ALBAPURE (ALBUMIN HUMAN) [Suspect]
     Active Substance: ALBUMIN HUMAN
     Dosage: STRENGTH: UNSPEC
     Route: 041
     Dates: start: 20160103
  2. METRONIDAZOLE. [Concomitant]
     Active Substance: METRONIDAZOLE
     Indication: SEPSIS
  3. VANCOMYCIN [Concomitant]
     Active Substance: VANCOMYCIN
     Indication: SEPSIS
  4. ALBAPURE (ALBUMIN HUMAN) [Suspect]
     Active Substance: ALBUMIN HUMAN
     Indication: HYPOALBUMINAEMIA
     Dosage: STRENGTH: UNSPEC
     Route: 041
     Dates: start: 20151228
  5. AZITHROMYCIN ANHYDROUS. [Concomitant]
     Active Substance: AZITHROMYCIN ANHYDROUS
     Indication: ANTIBIOTIC THERAPY
     Dosage: BATCH NO., STRENGTH: UNSPEC, DOSE REGIMEN (DOSE/TIME): 1CM/24HRS
     Route: 048
     Dates: start: 20151228, end: 20160106
  6. METRONIDAZOLE. [Concomitant]
     Active Substance: METRONIDAZOLE
     Indication: ANTIBIOTIC THERAPY
     Dosage: BATCH NO., STRENGTH: UNSPEC, ADDITIONAL INFORMATION: 2.5CM/12HRS
     Route: 042
     Dates: start: 20151230, end: 20160110
  7. FLUCONAZOLE. [Concomitant]
     Active Substance: FLUCONAZOLE
     Indication: SEPSIS
  8. FLUCONAZOLE. [Concomitant]
     Active Substance: FLUCONAZOLE
     Indication: ANTIBIOTIC THERAPY
     Dosage: BATCH NO., STRENGTH: UNSPEC, ADDITIONAL INFORMATION: 5.5CM/48HRS
     Route: 042
     Dates: start: 20151230, end: 20160110
  9. VANCOMYCIN [Concomitant]
     Active Substance: VANCOMYCIN
     Indication: ANTIBIOTIC THERAPY
     Dosage: BATCH NO., STRENGTH: UNSPEC, ADDITIONAL INFORMATION: 15MG/KG/8HRS
     Route: 042
     Dates: start: 20151228, end: 20160111
  10. AZITHROMYCIN ANHYDROUS. [Concomitant]
     Active Substance: AZITHROMYCIN ANHYDROUS
     Indication: SEPSIS

REACTIONS (3)
  - Hypoalbuminaemia [Recovered/Resolved]
  - Condition aggravated [None]
  - Drug ineffective [Recovered/Resolved]

NARRATIVE: CASE EVENT DATE: 20160102
